FAERS Safety Report 14267138 (Version 1)
Quarter: 2017Q4

REPORT INFORMATION
  Report Type: Spontaneous
  Country: US (occurrence: US)
  Receive Date: 20171208
  Receipt Date: 20171208
  Transmission Date: 20180321
  Serious: Yes (Disabling)
  Sender: FDA-Public Use
  Company Number: None

PATIENT
  Age: 63 Year
  Sex: Male
  Weight: 78.75 kg

DRUGS (2)
  1. ROSUVASTATIN. [Suspect]
     Active Substance: ROSUVASTATIN
     Indication: LOW DENSITY LIPOPROTEIN
     Dosage: ?          QUANTITY:30 TABLET(S);?
     Route: 048
  2. ZINC. [Concomitant]
     Active Substance: ZINC

REACTIONS (5)
  - Blood bilirubin increased [None]
  - Abdominal pain upper [None]
  - Blood urine present [None]
  - Pyrexia [None]
  - Chromaturia [None]

NARRATIVE: CASE EVENT DATE: 20171204
